FAERS Safety Report 4441994-8 (Version None)
Quarter: 2004Q3

REPORT INFORMATION
  Report Type: 
  Country: None (occurrence: None)
  Receive Date: 20040907
  Receipt Date: 20040901
  Transmission Date: 20050211
  Serious: Yes (Other)
  Sender: FDA-Public Use
  Company Number: DE-GLAXOSMITHKLINE-D0044604A

PATIENT
  Sex: Male

DRUGS (2)
  1. COMBIVIR [Suspect]
     Indication: HIV INFECTION
     Route: 065
  2. SUSTIVA [Suspect]
     Indication: HIV INFECTION
     Route: 065

REACTIONS (4)
  - ANGIOPATHY [None]
  - ARTHRALGIA [None]
  - PAIN IN EXTREMITY [None]
  - TINNITUS [None]
